FAERS Safety Report 8586379-8 (Version None)
Quarter: 2012Q3

REPORT INFORMATION
  Report Type: 
  Country: None (occurrence: None)
  Receive Date: 20120810
  Receipt Date: 20120808
  Transmission Date: 20120928
  Serious: Yes (Other)
  Sender: FDA-Public Use
  Company Number: AR-ROCHE-1099494

PATIENT
  Sex: Female

DRUGS (2)
  1. XELODA [Suspect]
     Indication: BREAST CANCER
     Route: 048
     Dates: start: 20110810, end: 20120314
  2. PACLITAXEL [Concomitant]
     Indication: BREAST CANCER

REACTIONS (3)
  - NAIL DISORDER [None]
  - DISEASE PROGRESSION [None]
  - PALMAR-PLANTAR ERYTHRODYSAESTHESIA SYNDROME [None]
